FAERS Safety Report 9695073 (Version 2)
Quarter: 2013Q4

REPORT INFORMATION
  Report Type: Spontaneous
  Country: VE (occurrence: VE)
  Receive Date: 20131119
  Receipt Date: 20131125
  Transmission Date: 20140711
  Serious: Yes (Other)
  Sender: FDA-Public Use
  Company Number: PHHY2013VE131043

PATIENT
  Age: 55 Year
  Sex: Female

DRUGS (2)
  1. ZOMETA [Suspect]
     Indication: OSTEOPOROSIS
     Dosage: 5 MG, ANNUALLY
     Route: 042
     Dates: start: 2010
  2. ZOMETA [Suspect]
     Indication: OFF LABEL USE
     Dosage: 5 MG, ANNUALLY
     Route: 042
     Dates: start: 201208

REACTIONS (3)
  - Breast cancer [Unknown]
  - Encapsulation reaction [Recovered/Resolved]
  - Fibrocystic breast disease [Recovered/Resolved]
